FAERS Safety Report 5578794-1 (Version None)
Quarter: 2007Q4

REPORT INFORMATION
  Report Type: 
  Country: None (occurrence: None)
  Receive Date: 20071228
  Receipt Date: 20071228
  Transmission Date: 20080405
  Serious: Yes (Hospitalization)
  Sender: FDA-Public Use
  Company Number: None

PATIENT
  Age: 53 Year
  Sex: Male

DRUGS (2)
  1. PEGINTERFERON/RIBAVIRIN [Suspect]
     Dosage: 180MCG  QWEEK  SQ
     Route: 058
     Dates: start: 20071002, end: 20071026
  2. RIBAVIRIN [Suspect]
     Dosage: 400MG  BID  PO
     Route: 048
     Dates: start: 20071011, end: 20071026

REACTIONS (4)
  - ANAEMIA [None]
  - ASTHENIA [None]
  - NAUSEA [None]
  - VOMITING [None]
